FAERS Safety Report 23188244 (Version 1)
Quarter: 2023Q4

REPORT INFORMATION
  Report Type: Spontaneous
  Country: US (occurrence: US)
  Receive Date: 20231115
  Receipt Date: 20231115
  Transmission Date: 20240109
  Serious: No
  Sender: FDA-Public Use
  Company Number: US-PFIZER INC-PV202300187000

PATIENT
  Age: 17 Year
  Sex: Male

DRUGS (2)
  1. LITFULO [Interacting]
     Active Substance: RITLECITINIB TOSYLATE
     Dosage: UNK
  2. PREDNISONE [Interacting]
     Active Substance: PREDNISONE
     Dosage: UNK

REACTIONS (1)
  - Drug interaction [Unknown]
